FAERS Safety Report 13472966 (Version 1)
Quarter: 2017Q2

REPORT INFORMATION
  Report Type: Report from Study
  Country: FR (occurrence: FR)
  Receive Date: 20170424
  Receipt Date: 20170424
  Transmission Date: 20170830
  Serious: Yes (Hospitalization)
  Sender: FDA-Public Use
  Company Number: FR-CELGENEUS-FRA-2017023170

PATIENT
  Age: 65 Year
  Sex: Male
  Weight: 67 kg

DRUGS (16)
  1. ABRAXANE [Suspect]
     Active Substance: PACLITAXEL
     Indication: PANCREATIC CARCINOMA METASTATIC
     Route: 041
     Dates: start: 20160901
  2. GEMCITABINE [Suspect]
     Active Substance: GEMCITABINE\GEMCITABINE HYDROCHLORIDE
     Indication: PANCREATIC CARCINOMA METASTATIC
     Route: 065
     Dates: start: 20160901
  3. FOLINIC ACID [Suspect]
     Active Substance: LEUCOVORIN
     Route: 065
     Dates: start: 20161221
  4. IMOVANE [Concomitant]
     Active Substance: ZOPICLONE
     Indication: DEPRESSION
     Route: 065
     Dates: start: 201612
  5. INNOHEP [Concomitant]
     Active Substance: TINZAPARIN SODIUM
     Indication: DEEP VEIN THROMBOSIS
     Dosage: 0.7ML/ 14000 IU
     Route: 065
     Dates: start: 201608
  6. 5-FLUOROURACIL [Suspect]
     Active Substance: FLUOROURACIL
     Route: 065
     Dates: start: 20161221
  7. DRIPTANE [Concomitant]
     Active Substance: OXYBUTYNIN
     Indication: URINARY RETENTION
     Route: 065
     Dates: start: 20161230
  8. IRINOTECAN [Suspect]
     Active Substance: IRINOTECAN
     Indication: PANCREATIC CARCINOMA METASTATIC
     Dosage: 165 X 2MG
     Route: 065
     Dates: start: 20161031
  9. FOLINIC ACID [Suspect]
     Active Substance: LEUCOVORIN
     Indication: PANCREATIC CARCINOMA METASTATIC
     Route: 065
     Dates: start: 20161031, end: 20161129
  10. 5-FLUOROURACIL [Suspect]
     Active Substance: FLUOROURACIL
     Indication: PANCREATIC CARCINOMA METASTATIC
     Route: 065
     Dates: start: 20161031
  11. XANAX [Concomitant]
     Active Substance: ALPRAZOLAM
     Indication: ANXIETY
     Route: 065
     Dates: start: 201610
  12. SEROPLEX [Concomitant]
     Active Substance: ESCITALOPRAM OXALATE
     Indication: DEPRESSION
     Route: 065
     Dates: start: 201612
  13. XATRAL LR [Concomitant]
     Indication: URINARY RETENTION
     Route: 065
     Dates: start: 20161230
  14. IRINOTECAN [Suspect]
     Active Substance: IRINOTECAN
     Dosage: 165 X 2MG
     Route: 065
     Dates: start: 20161221
  15. TENORMIN [Concomitant]
     Active Substance: ATENOLOL
     Indication: HYPERTENSION
     Route: 065
  16. TAHOR [Concomitant]
     Active Substance: ATORVASTATIN CALCIUM
     Indication: DYSLIPIDAEMIA
     Route: 065

REACTIONS (4)
  - Hypokalaemia [Recovered/Resolved]
  - Enteritis [Recovered/Resolved]
  - Dehydration [Recovered/Resolved]
  - Hyperthermia [Recovered/Resolved]

NARRATIVE: CASE EVENT DATE: 20161213
